FAERS Safety Report 8977856 (Version 1)
Quarter: 2012Q4

REPORT INFORMATION
  Report Type: 
  Country: IT (occurrence: IT)
  Receive Date: 20121219
  Receipt Date: 20121219
  Transmission Date: 20130627
  Serious: Yes (Hospitalization)
  Sender: FDA-Public Use
  Company Number: IT-BAYER-2012-131131

PATIENT
  Age: 39 Year
  Sex: Female

DRUGS (1)
  1. CIPROXIN 500 MG FILM-COATED TABLETS [Suspect]
     Dosage: 500 mg, QD
     Route: 048
     Dates: start: 20120523, end: 20120526

REACTIONS (2)
  - Rash [Recovered/Resolved]
  - Salivary hypersecretion [Recovered/Resolved]
